FAERS Safety Report 18657291 (Version 8)
Quarter: 2021Q2

REPORT INFORMATION
  Report Type: Report from Study
  Country: CN (occurrence: CN)
  Receive Date: 20201224
  Receipt Date: 20210611
  Transmission Date: 20210717
  Serious: Yes (Hospitalization)
  Sender: FDA-Public Use
  Company Number: CN-ROCHE-2734840

PATIENT
  Age: 70 Year
  Sex: Male
  Weight: 72.4 kg

DRUGS (35)
  1. DIPHENHYDRAMINE HYDROCHLORIDE. [Concomitant]
     Active Substance: DIPHENHYDRAMINE HYDROCHLORIDE
     Indication: ALLERGY PROPHYLAXIS
     Route: 030
     Dates: start: 20201118, end: 20201118
  2. ACETAMINOPHEN. [Concomitant]
     Active Substance: ACETAMINOPHEN
     Route: 048
     Dates: start: 20210220, end: 20210220
  3. LIDOCAINE. [Concomitant]
     Active Substance: LIDOCAINE
     Route: 062
     Dates: start: 20201216, end: 20201216
  4. PREDNISONE. [Suspect]
     Active Substance: PREDNISONE
     Indication: DIFFUSE LARGE B-CELL LYMPHOMA
     Dosage: DATE OF MOST RECENT DOSE OF PREDNISONE (100 MG) PRIOR TO SAE ONSET: 22/NOV/2020?ON DAYS 1 EVERY 21?D
     Route: 048
     Dates: start: 20200827
  5. REDUCED GLUTATHIONE SODIUM [Concomitant]
     Active Substance: GLUTATHIONE
     Route: 042
     Dates: start: 20210106, end: 20210106
  6. NIFEDIPINE. [Concomitant]
     Active Substance: NIFEDIPINE
     Route: 048
     Dates: start: 20210106, end: 20210106
  7. CEFOXITIN SODIUM [Concomitant]
     Active Substance: CEFOXITIN SODIUM
     Route: 042
     Dates: start: 20201216, end: 20201217
  8. REDUCED GLUTATHIONE SODIUM [Concomitant]
     Active Substance: GLUTATHIONE
     Route: 042
     Dates: start: 20201118, end: 20201118
  9. ACETAMINOPHEN. [Concomitant]
     Active Substance: ACETAMINOPHEN
     Route: 048
     Dates: start: 20210129, end: 20210129
  10. OMEPRAZOLE MAGNESIUM. [Concomitant]
     Active Substance: OMEPRAZOLE MAGNESIUM
     Route: 048
     Dates: start: 20201119, end: 20201125
  11. LIDOCAINE HYDROCHLORIDE. [Concomitant]
     Active Substance: LIDOCAINE HYDROCHLORIDE
     Route: 042
     Dates: start: 20201216, end: 20201216
  12. PLACEBO [Suspect]
     Active Substance: UNSPECIFIED INGREDIENT
     Indication: DIFFUSE LARGE B-CELL LYMPHOMA
     Dosage: DATE OF MOST RECENT DOSE OF PLACEBO PRIOR TO SAE ONSET: 18/NOV/2020?ON DAY 1 OF EACH 21?DAY CYCLE FO
     Route: 042
     Dates: start: 20200828
  13. DIPHENHYDRAMINE HYDROCHLORIDE. [Concomitant]
     Active Substance: DIPHENHYDRAMINE HYDROCHLORIDE
     Route: 030
     Dates: start: 20210129, end: 20210129
  14. ACETAMINOPHEN. [Concomitant]
     Active Substance: ACETAMINOPHEN
     Route: 048
     Dates: start: 20210106, end: 20210106
  15. GLYCERINE ENEMA [Concomitant]
     Route: 067
     Dates: start: 20201216, end: 20201216
  16. EPHEDRINE HYDROCHLORIDE [Concomitant]
     Active Substance: EPHEDRINE HYDROCHLORIDE
     Route: 042
     Dates: start: 20201216, end: 20201216
  17. ATROPINE SULFATE. [Concomitant]
     Active Substance: ATROPINE SULFATE
     Route: 042
     Dates: start: 20201216
  18. OMEPRAZOLE. [Concomitant]
     Active Substance: OMEPRAZOLE
     Route: 048
     Dates: start: 20210107, end: 20210113
  19. FLURBIPROFEN. [Concomitant]
     Active Substance: FLURBIPROFEN
     Route: 042
     Dates: start: 20201216, end: 20201217
  20. COMPOUND POLYMYXIN B [Concomitant]
     Route: 062
     Dates: start: 20201216, end: 20201216
  21. ROPIVACAINE HYDROCHLORIDE. [Concomitant]
     Active Substance: ROPIVACAINE HYDROCHLORIDE
     Route: 042
     Dates: start: 20201216, end: 20201216
  22. METHOXAMINE HYDROCHLORIDE [Concomitant]
     Active Substance: METHOXAMINE HYDROCHLORIDE
     Route: 042
     Dates: start: 20201216, end: 20201216
  23. CYCLOPHOSPHAMIDE. [Suspect]
     Active Substance: CYCLOPHOSPHAMIDE
     Indication: DIFFUSE LARGE B-CELL LYMPHOMA
     Dosage: DATE OF MOST RECENT DOSE OF CYCLOPHOSPHAMIDE (1342.5 MG) PRIOR TO SAE ONSET: 18/NOV/2020?ON DAYS 1 E
     Route: 042
     Dates: start: 20200827
  24. ESOMEPRAZOLE SODIUM. [Concomitant]
     Active Substance: ESOMEPRAZOLE SODIUM
     Route: 042
     Dates: start: 20201118, end: 20201118
  25. ACETAMINOPHEN. [Concomitant]
     Active Substance: ACETAMINOPHEN
     Route: 048
     Dates: start: 20201118, end: 20201118
  26. MECAPEGFILGRASTIM [Concomitant]
     Active Substance: MECAPEGFILGRASTIM
     Indication: PROPHYLAXIS
     Route: 058
     Dates: start: 20201120, end: 20201120
  27. LACTULOSE. [Concomitant]
     Active Substance: LACTULOSE
     Route: 048
     Dates: start: 20201216, end: 20201223
  28. DOXORUBICIN [Suspect]
     Active Substance: DOXORUBICIN
     Indication: DIFFUSE LARGE B-CELL LYMPHOMA
     Dosage: DATE OF MOST RECENT DOSE OF DOXORUBICIN (89.5 MG) PRIOR TO SAE ONSET: 18/NOV/2020?ON DAYS 1 EVERY 21
     Route: 042
     Dates: start: 20200827
  29. ESOMEPRAZOLE SODIUM. [Concomitant]
     Active Substance: ESOMEPRAZOLE SODIUM
     Route: 042
     Dates: start: 20210106, end: 20210106
  30. DIPHENHYDRAMINE HYDROCHLORIDE. [Concomitant]
     Active Substance: DIPHENHYDRAMINE HYDROCHLORIDE
     Route: 030
     Dates: start: 20210220, end: 20210220
  31. DIPHENHYDRAMINE HYDROCHLORIDE. [Concomitant]
     Active Substance: DIPHENHYDRAMINE HYDROCHLORIDE
     Route: 030
     Dates: start: 20210106, end: 20210106
  32. TROPISETRON [Concomitant]
     Active Substance: TROPISETRON
     Indication: PROPHYLAXIS OF NAUSEA AND VOMITING
     Route: 042
     Dates: start: 20210106, end: 20210106
  33. VINCRISTINE [Suspect]
     Active Substance: VINCRISTINE
     Indication: DIFFUSE LARGE B-CELL LYMPHOMA
     Dosage: 1MG/1ML?DATE OF MOST RECENT DOSE OF  VINCRISTINE (2 MG) PRIOR TO SAE ONSET: 18/NOV/2020?VIA MINIBAG
     Route: 042
     Dates: start: 20200827
  34. RITUXIMAB. [Suspect]
     Active Substance: RITUXIMAB
     Indication: DIFFUSE LARGE B-CELL LYMPHOMA
     Dosage: DATE OF MOST RECENT DOSE OF RITUXIMAB (671.3 MG) PRIOR TO SAE ONSET: 18/NOV/2020?ON DAY 1 OF EACH CY
     Route: 041
     Dates: start: 20200827
  35. MIDAZOLAM. [Concomitant]
     Active Substance: MIDAZOLAM
     Route: 042
     Dates: start: 20201216, end: 20201216

REACTIONS (1)
  - Anal fistula [Recovered/Resolved]

NARRATIVE: CASE EVENT DATE: 20201208
